FAERS Safety Report 11911158 (Version 1)
Quarter: 2016Q1

REPORT INFORMATION
  Report Type: Spontaneous
  Country: US (occurrence: US)
  Receive Date: 20160112
  Receipt Date: 20160112
  Transmission Date: 20160526
  Serious: No
  Sender: FDA-Public Use
  Company Number: US-TARO-2015TAR01011

PATIENT
  Sex: Female

DRUGS (1)
  1. KETOCONAZOLE CREAM 2% [Suspect]
     Active Substance: KETOCONAZOLE
     Indication: FUNGAL INFECTION
     Dosage: UNSPECIFIED AMOUNT ONCE DAILY TO TOES AND TOENAILS
     Route: 061
     Dates: start: 201504, end: 20151020

REACTIONS (2)
  - Drug ineffective [Not Recovered/Not Resolved]
  - Drug ineffective for unapproved indication [Not Recovered/Not Resolved]

NARRATIVE: CASE EVENT DATE: 201504
